FAERS Safety Report 19699096 (Version 1)
Quarter: 2021Q3

REPORT INFORMATION
  Report Type: Spontaneous
  Country: US (occurrence: US)
  Receive Date: 20210813
  Receipt Date: 20210813
  Transmission Date: 20211014
  Serious: No
  Sender: FDA-Public Use
  Company Number: US-PFIZER INC-2021907837

PATIENT
  Age: 55 Year
  Sex: Male
  Weight: 79.38 kg

DRUGS (2)
  1. LATANOPROST. [Suspect]
     Active Substance: LATANOPROST
     Indication: GLAUCOMA
  2. LATANOPROST. [Suspect]
     Active Substance: LATANOPROST
     Indication: INTRAOCULAR PRESSURE INCREASED
     Dosage: 1 DROP, 1X/DAY (INSTILL 1 DROP AT BEDTIME IN BOTH EYE)
     Route: 047
     Dates: start: 20210705, end: 20210713

REACTIONS (9)
  - Pyrexia [Unknown]
  - Expired product administered [Unknown]
  - Abnormal faeces [Unknown]
  - Sinusitis [Unknown]
  - Influenza [Unknown]
  - Feeling abnormal [Unknown]
  - Somnolence [Unknown]
  - Inappropriate schedule of product administration [Unknown]
  - Chills [Recovering/Resolving]

NARRATIVE: CASE EVENT DATE: 202107
